FAERS Safety Report 4990679-8 (Version None)
Quarter: 2006Q1

REPORT INFORMATION
  Report Type: 
  Country: None (occurrence: None)
  Receive Date: 20060314
  Receipt Date: 20051129
  Transmission Date: 20060701
  Serious: Yes (Other)
  Sender: FDA-Public Use
  Company Number: M04-341-047

PATIENT
  Age: 72 Year
  Sex: Male
  Weight: 128 kg

DRUGS (1)
  1. VELCADE [Suspect]
     Indication: MULTIPLE MYELOMA
     Dosage: 2.6 MG, IV BOLUS
     Route: 040
     Dates: start: 20040216, end: 20040219

REACTIONS (4)
  - DIZZINESS [None]
  - HYPOAESTHESIA [None]
  - NEUROPATHY [None]
  - PARAESTHESIA [None]
